FAERS Safety Report 8398414-0 (Version None)
Quarter: 2012Q2

REPORT INFORMATION
  Report Type: 
  Country: None (occurrence: None)
  Receive Date: 20120323
  Receipt Date: 20110208
  Transmission Date: 20120825
  Serious: Yes (Hospitalization, Disabling, Other)
  Sender: FDA-Public Use
  Company Number: 163-21880-10101598

PATIENT
  Age: 83 Year
  Sex: Male

DRUGS (30)
  1. EPO (EPOETIN ALFA) [Concomitant]
  2. LASIX [Concomitant]
  3. ADVAIR HFA [Concomitant]
  4. TURBUHALER ^DRACO^) [Concomitant]
  5. MEGACE (MEGESROL ACETATE) [Concomitant]
  6. AMBIEN [Concomitant]
  7. HUMALOG [Concomitant]
  8. COZAAR [Concomitant]
  9. NEURONTIN [Concomitant]
  10. LOVAZA [Concomitant]
  11. REVLIMID [Suspect]
  12. DITROPAN [Concomitant]
  13. LACTULOSE [Concomitant]
  14. PROCARDIA XL [Concomitant]
  15. CLOTRIMAZOLE [Concomitant]
  16. FLOMAX [Concomitant]
  17. AGGRENOX [Concomitant]
  18. MIRAPEX [Concomitant]
  19. MIRALAX [Concomitant]
  20. REVLIMID [Suspect]
     Indication: 5Q MINUS SYNDROME
     Dosage: 5 MG, 1 IN 1 D, PO 10 MG, DAILY, PO
     Route: 048
     Dates: start: 20090427
  21. REVLIMID [Suspect]
     Indication: 5Q MINUS SYNDROME
     Dosage: 5 MG, 1 IN 1 D, PO 10 MG, DAILY, PO
     Route: 048
     Dates: start: 20090713
  22. LORTAB [Concomitant]
  23. ALBUTEROL [Concomitant]
  24. NOVOLOG [Concomitant]
  25. ACETAMINOPHEN [Concomitant]
  26. XANAX [Concomitant]
  27. EFFEXOR XR [Concomitant]
  28. PYRIDIUM (PHENAZOPYRIDINE HYDROCHLORIDE) [Concomitant]
  29. HUMULIN R [Concomitant]
  30. REVLIMID [Suspect]

REACTIONS (14)
  - PANCYTOPENIA [None]
  - SEPSIS [None]
  - DRUG DOSE OMISSION [None]
  - HYPOTENSION [None]
  - DYSPNOEA [None]
  - FEBRILE NEUTROPENIA [None]
  - BLOOD CREATININE INCREASED [None]
  - PULMONARY OEDEMA [None]
  - CARDIAC FAILURE [None]
  - LOBAR PNEUMONIA [None]
  - CHILLS [None]
  - HAEMOGLOBIN DECREASED [None]
  - PYREXIA [None]
  - RENAL IMPAIRMENT [None]
